FAERS Safety Report 14248599 (Version 1)
Quarter: 2017Q4

REPORT INFORMATION
  Report Type: Spontaneous
  Country: US (occurrence: US)
  Receive Date: 20171203
  Receipt Date: 20171203
  Transmission Date: 20180321
  Serious: Yes (Other)
  Sender: FDA-Public Use
  Company Number: None

PATIENT
  Age: 3 Year
  Sex: Female
  Weight: 15.75 kg

DRUGS (3)
  1. EQUATE CHILDRENS PAIN AND FEVER [Suspect]
     Active Substance: ACETAMINOPHEN
     Indication: PAIN
     Dosage: QUANTITY:1 TEASPOON(S); AT BEDTIME?
     Route: 048
     Dates: start: 20171202, end: 20171202
  2. LIL CRITTERS FIBER DIGESTIVE SUPPORT [Concomitant]
  3. GUMMY VITES [Concomitant]

REACTIONS (4)
  - Sleep disorder [None]
  - Balance disorder [None]
  - Dizziness [None]
  - Hallucination [None]

NARRATIVE: CASE EVENT DATE: 20171202
